FAERS Safety Report 7119000-6 (Version None)
Quarter: 2010Q4

REPORT INFORMATION
  Report Type: 
  Country: None (occurrence: None)
  Receive Date: 20101123
  Receipt Date: 20101116
  Transmission Date: 20110411
  Serious: Yes (Other)
  Sender: FDA-Public Use
  Company Number: A0863106A

PATIENT
  Age: 70 Year
  Sex: Male
  Weight: 74.8 kg

DRUGS (12)
  1. AVODART [Suspect]
     Indication: PROSTATIC DISORDER
     Dosage: .5MG PER DAY
     Route: 048
     Dates: start: 20070101
  2. DILTIAZEM HYDROCHLORIDE [Suspect]
     Indication: BLOOD PRESSURE
     Dosage: 360MG PER DAY
     Route: 048
     Dates: start: 20050101
  3. POTASSIUM CHLORIDE [Suspect]
     Dosage: 20MEQ TWICE PER DAY
     Route: 048
     Dates: start: 20050101
  4. ZETIA [Suspect]
     Dosage: 10MG PER DAY
     Route: 048
     Dates: start: 20060101
  5. METOPROLOL (SLOW RELEASE) [Suspect]
     Indication: BLOOD PRESSURE
     Dosage: 100MG PER DAY
     Route: 048
     Dates: start: 20050101
  6. QUINAPRIL [Suspect]
     Indication: BLOOD PRESSURE
     Dosage: 40MG PER DAY
     Route: 048
     Dates: start: 20030101
  7. ALPRAZOLAM [Suspect]
     Indication: ANXIETY
     Dosage: .5MG AT NIGHT
     Route: 048
     Dates: start: 19980101
  8. UROXATRAL [Suspect]
     Indication: MICTURITION DISORDER
     Dosage: 10MG AT NIGHT
     Route: 048
     Dates: start: 20091101
  9. ARICEPT [Suspect]
     Dosage: 5MG PER DAY
     Route: 048
     Dates: start: 20100101, end: 20100901
  10. FUROSEMIDE [Suspect]
     Route: 065
  11. MEMANTINE [Suspect]
     Indication: DEMENTIA
     Dosage: 5MG PER DAY
     Dates: start: 20100921
  12. AMBIEN [Suspect]
     Route: 065

REACTIONS (18)
  - ABDOMINAL DISCOMFORT [None]
  - BLADDER DISORDER [None]
  - DEMENTIA [None]
  - DIARRHOEA [None]
  - DIZZINESS [None]
  - DYSURIA [None]
  - ERYTHEMA [None]
  - EYE IRRITATION [None]
  - GAIT DISTURBANCE [None]
  - HEAD DISCOMFORT [None]
  - HEADACHE [None]
  - MALAISE [None]
  - NAUSEA [None]
  - OEDEMA PERIPHERAL [None]
  - SOMNOLENCE [None]
  - STRESS [None]
  - URINE FLOW DECREASED [None]
  - VITAMIN D DECREASED [None]
